FAERS Safety Report 5812841-4 (Version None)
Quarter: 2008Q3

REPORT INFORMATION
  Report Type: 
  Country: None (occurrence: None)
  Receive Date: 20080717
  Receipt Date: 20080709
  Transmission Date: 20090109
  Serious: Yes (Death, Other)
  Sender: FDA-Public Use
  Company Number: JP-NOVOPROD-276319

PATIENT
  Age: 85 Year
  Sex: Female

DRUGS (2)
  1. NOVOSEVEN [Suspect]
     Indication: CEREBRAL HAEMORRHAGE
     Dosage: 4.8 MG, UNK
     Route: 042
     Dates: start: 20080503
  2. MANNITOL [Concomitant]
     Indication: ACQUIRED HAEMOPHILIA

REACTIONS (3)
  - MYOCARDIAL INFARCTION [None]
  - RENAL DISORDER [None]
  - SEPTIC SHOCK [None]
